FAERS Safety Report 13398563 (Version 2)
Quarter: 2017Q2

REPORT INFORMATION
  Report Type: Spontaneous
  Country: CN (occurrence: CN)
  Receive Date: 20170403
  Receipt Date: 20170410
  Transmission Date: 20170830
  Serious: Yes (Hospitalization, Disabling, Other)
  Sender: FDA-Public Use
  Company Number: CN-SA-2017SA053065

PATIENT
  Age: 48 Year
  Sex: Female

DRUGS (13)
  1. DOCETAXEL. [Suspect]
     Active Substance: DOCETAXEL
     Indication: ENDOMETRIAL CANCER
     Dosage: 70 MG/M2
     Route: 042
  2. CISPLATIN. [Suspect]
     Active Substance: CISPLATIN
     Indication: ENDOMETRIAL CANCER
     Dosage: 50 MG/M2
     Route: 065
  3. DOCETAXEL. [Suspect]
     Active Substance: DOCETAXEL
     Indication: ENDOMETRIAL CANCER
     Dosage: 70 MG/M2
     Route: 042
  4. DOCETAXEL. [Suspect]
     Active Substance: DOCETAXEL
     Indication: SMALL CELL CARCINOMA
     Dosage: 70 MG/M2
     Route: 042
  5. DOCETAXEL. [Suspect]
     Active Substance: DOCETAXEL
     Indication: SMALL CELL CARCINOMA
     Dosage: 70 MG/M2
     Route: 042
  6. CISPLATIN. [Suspect]
     Active Substance: CISPLATIN
     Indication: ENDOMETRIAL CANCER STAGE III
     Dosage: 50 MG/M2
     Route: 065
  7. LOBAPLATIN [Suspect]
     Active Substance: LOBAPLATIN
     Indication: ENDOMETRIAL CANCER STAGE III
     Dosage: 25 MG/M2
     Route: 065
  8. ACARBOSE. [Concomitant]
     Active Substance: ACARBOSE
     Indication: TYPE 2 DIABETES MELLITUS
     Route: 065
  9. DOCETAXEL. [Suspect]
     Active Substance: DOCETAXEL
     Indication: ENDOMETRIAL CANCER STAGE III
     Dosage: 70 MG/M2
     Route: 042
  10. CISPLATIN. [Suspect]
     Active Substance: CISPLATIN
     Indication: SMALL CELL CARCINOMA
     Dosage: 50 MG/M2
     Route: 065
  11. LOBAPLATIN [Suspect]
     Active Substance: LOBAPLATIN
     Indication: SMALL CELL CARCINOMA
     Dosage: 25 MG/M2
     Route: 065
  12. DOCETAXEL. [Suspect]
     Active Substance: DOCETAXEL
     Indication: ENDOMETRIAL CANCER STAGE III
     Dosage: 70 MG/M2
     Route: 042
  13. LOBAPLATIN [Suspect]
     Active Substance: LOBAPLATIN
     Indication: ENDOMETRIAL CANCER
     Dosage: 25 MG/M2
     Route: 065

REACTIONS (6)
  - Retinal depigmentation [Not Recovered/Not Resolved]
  - Blindness [Not Recovered/Not Resolved]
  - Visual impairment [Not Recovered/Not Resolved]
  - Retinitis pigmentosa [Not Recovered/Not Resolved]
  - Hypermetropia [Not Recovered/Not Resolved]
  - Visual acuity reduced [Not Recovered/Not Resolved]
